FAERS Safety Report 7899126-X (Version None)
Quarter: 2011Q4

REPORT INFORMATION
  Report Type: 
  Country: None (occurrence: None)
  Receive Date: 20111107
  Receipt Date: 20110912
  Transmission Date: 20120403
  Serious: No
  Sender: FDA-Public Use
  Company Number: US-AMGEN-USASP2011046565

PATIENT
  Age: 63 Year
  Sex: Female
  Weight: 84.807 kg

DRUGS (9)
  1. LOVASTATIN [Concomitant]
     Dosage: 10 MG, UNK
  2. METFORMIN HCL [Concomitant]
     Dosage: 850 MG, UNK
  3. NORCO [Concomitant]
  4. PREDNISONE [Concomitant]
     Dosage: 1 MG, UNK
  5. IBUPROFEN [Concomitant]
     Dosage: 200 MG, UNK
  6. LISINOPRIL [Concomitant]
     Dosage: 5 MG, UNK
  7. ALEVE [Concomitant]
     Dosage: 220 MG, UNK
  8. LANTUS [Concomitant]
  9. ENBREL [Suspect]
     Indication: PRODUCT USED FOR UNKNOWN INDICATION
     Dosage: 50 MG, QWK

REACTIONS (3)
  - FALL [None]
  - JOINT SWELLING [None]
  - UPPER LIMB FRACTURE [None]
